FAERS Safety Report 4657444-2 (Version None)
Quarter: 2005Q2

REPORT INFORMATION
  Report Type: 
  Country: None (occurrence: None)
  Receive Date: 20050509
  Receipt Date: 20050509
  Transmission Date: 20051028
  Serious: Yes (Other)
  Sender: FDA-Public Use
  Company Number: None

PATIENT
  Sex: Female

DRUGS (7)
  1. CORRECTOL [Suspect]
     Indication: CONSTIPATION
     Dosage: TWO PILLS QD ORAL
     Route: 048
     Dates: start: 19810101, end: 20040101
  2. EX-LAX [Suspect]
     Dosage: ONE PILL QD
     Dates: start: 19700101, end: 19900101
  3. MILK OF MAGNESIA [Suspect]
     Dosage: 1 BOTTLE Q MO
     Dates: start: 19800101, end: 20040101
  4. COD LIVER OIL CONCENTRATE [Suspect]
     Dosage: 1 BOTTLE Q YR
     Dates: start: 19800101, end: 20040101
  5. CASTOR OIL [Suspect]
     Dosage: 1 BOTTLE Q YR
     Dates: start: 19800101, end: 20040301
  6. SOAP ENEMA ENEMA [Suspect]
     Dosage: ONE MONTHLY
     Dates: start: 19900101, end: 20040201
  7. CLOMID [Concomitant]

REACTIONS (5)
  - HAEMATOCHEZIA [None]
  - HAEMORRHOIDS [None]
  - RECTAL HAEMORRHAGE [None]
  - RECTAL POLYP [None]
  - TREATMENT NONCOMPLIANCE [None]
